FAERS Safety Report 18783708 (Version 2)
Quarter: 2021Q1

REPORT INFORMATION
  Report Type: Spontaneous
  Country: IT (occurrence: IT)
  Receive Date: 20210125
  Receipt Date: 20210331
  Transmission Date: 20210419
  Serious: Yes (Life-Threatening, Hospitalization, Other)
  Sender: FDA-Public Use
  Company Number: IT-ACCORD-215603

PATIENT
  Sex: Female

DRUGS (3)
  1. CISPLATIN. [Suspect]
     Active Substance: CISPLATIN
     Indication: TONSIL CANCER
     Dosage: INFUSED AT PERSONALISED DOSAGES FOR ONE CYCLE
     Dates: start: 201711
  2. PACLITAXEL/PACLITAXEL LIPOSOME [Suspect]
     Active Substance: PACLITAXEL
     Indication: TONSIL CANCER
     Dosage: INFUSED AT PERSONALISED DOSAGES FOR ONE CYCLE
     Dates: start: 201711
  3. CETUXIMAB. [Suspect]
     Active Substance: CETUXIMAB
     Indication: TONSIL CANCER
     Dosage: INFUSED AT PERSONALISED DOSAGES FOR ONE CYCLE
     Dates: start: 201711

REACTIONS (3)
  - Pancytopenia [Recovered/Resolved]
  - Off label use [Unknown]
  - Sepsis [Recovered/Resolved]
